FAERS Safety Report 9894070 (Version 2)
Quarter: 2014Q1

REPORT INFORMATION
  Report Type: Spontaneous
  Country: BR (occurrence: BR)
  Receive Date: 20140213
  Receipt Date: 20140225
  Transmission Date: 20141002
  Serious: Yes (Hospitalization, Other)
  Sender: FDA-Public Use
  Company Number: BR-ASTRAZENECA-2014SE09147

PATIENT
  Age: 67 Year
  Sex: Male

DRUGS (7)
  1. SELOZOK [Suspect]
     Indication: HYPERTENSION
     Route: 048
     Dates: start: 2012, end: 201308
  2. SELOZOK [Suspect]
     Indication: HYPERTENSION
     Route: 048
     Dates: start: 201308
  3. BRILINTA [Suspect]
     Indication: DEVICE OCCLUSION
     Route: 048
     Dates: start: 201305
  4. CORUS [Concomitant]
     Indication: HYPERTENSION
     Route: 048
     Dates: start: 2012
  5. SOMALGIN CARDIO [Concomitant]
     Route: 048
     Dates: start: 2012
  6. LIPITOR [Concomitant]
     Indication: CARDIAC DISORDER
     Route: 048
     Dates: start: 2012
  7. PANTOPRAZOLE [Concomitant]
     Indication: GASTRITIS PROPHYLAXIS
     Dosage: DAILY
     Route: 048
     Dates: start: 2012

REACTIONS (5)
  - Coronary artery occlusion [Recovered/Resolved]
  - Inguinal hernia [Not Recovered/Not Resolved]
  - Blood pressure increased [Recovered/Resolved]
  - Parosmia [Not Recovered/Not Resolved]
  - Drug ineffective [Unknown]
